FAERS Safety Report 7940887-9 (Version None)
Quarter: 2011Q4

REPORT INFORMATION
  Report Type: 
  Country: None (occurrence: None)
  Receive Date: 20111128
  Receipt Date: 20111122
  Transmission Date: 20120403
  Serious: Yes (Death)
  Sender: FDA-Public Use
  Company Number: FR-SANOFI-AVENTIS-2011SA076597

PATIENT
  Age: 80 Year
  Sex: Male

DRUGS (9)
  1. AMLODIPINE/VALSARTAN [Suspect]
     Route: 048
     Dates: end: 20110922
  2. AMARYL [Suspect]
     Route: 048
     Dates: end: 20110922
  3. PREVISCAN [Suspect]
     Route: 048
     Dates: start: 20110902, end: 20110922
  4. XALATAN [Suspect]
     Route: 047
     Dates: end: 20110922
  5. TAMSULOSIN HCL [Suspect]
     Route: 048
     Dates: end: 20110922
  6. INSULIN [Suspect]
     Route: 058
  7. BISOPROLOL FUMARATE [Suspect]
     Route: 048
     Dates: end: 20110922
  8. SIMVASTATIN [Suspect]
     Route: 048
     Dates: end: 20110922
  9. DECAPEPTYL - SLOW RELEASE [Suspect]
     Dosage: 1 DF EVERY 3 MONTHS
     Route: 030
     Dates: end: 20110922

REACTIONS (3)
  - COMA [None]
  - CEREBRAL HAEMATOMA [None]
  - HEMIPLEGIA [None]
